FAERS Safety Report 8396274-5 (Version None)
Quarter: 2012Q2

REPORT INFORMATION
  Report Type: 
  Country: None (occurrence: None)
  Receive Date: 20120530
  Receipt Date: 20120515
  Transmission Date: 20120825
  Serious: Yes (Other)
  Sender: FDA-Public Use
  Company Number: CN-ROCHE-1067121

PATIENT
  Age: 58 Year
  Sex: Female

DRUGS (4)
  1. CARBOPLATIN [Concomitant]
     Dosage: AUC 6, FOR 6 CYCLES
     Route: 042
     Dates: start: 20080101
  2. BEVACIZUMAB [Suspect]
     Indication: LUNG ADENOCARCINOMA
     Dosage: FOR 6 CYCLES
     Route: 042
     Dates: start: 20080101
  3. BEVACIZUMAB [Suspect]
     Dosage: AS MONOTHERAPY
     Dates: start: 20080501
  4. PACLITAXEL [Concomitant]
     Dosage: FOR 6 CYCLES
     Route: 042
     Dates: start: 20080101

REACTIONS (1)
  - GASTROENTERITIS EOSINOPHILIC [None]
